FAERS Safety Report 8292338-5 (Version None)
Quarter: 2012Q2

REPORT INFORMATION
  Report Type: 
  Country: None (occurrence: None)
  Receive Date: 20120417
  Receipt Date: 20120404
  Transmission Date: 20120825
  Serious: Yes (Hospitalization)
  Sender: FDA-Public Use
  Company Number: US-ROCHE-1045136

PATIENT
  Sex: Female

DRUGS (9)
  1. COPEGUS [Suspect]
     Indication: HEPATITIS C
     Dosage: IN DIVIDED DOSE
     Dates: start: 20111019
  2. IBUPROFEN [Concomitant]
  3. BENAZEPRIL HYDROCHLORIDE [Concomitant]
  4. HYDROCHLOROTHIAZIDE [Concomitant]
  5. METFORMIN HCL [Concomitant]
  6. PHENERGAN HCL [Concomitant]
  7. SERTRALINE HYDROCHLORIDE [Concomitant]
  8. PEGINTERFERON ALFA-2A [Suspect]
     Indication: HEPATITIS C
     Dates: start: 20111019
  9. GABAPENTIN [Concomitant]

REACTIONS (6)
  - GASTROINTESTINAL DISORDER [None]
  - SMALL INTESTINAL STENOSIS [None]
  - DIARRHOEA [None]
  - VOMITING [None]
  - PLATELET COUNT DECREASED [None]
  - BLOOD GLUCOSE DECREASED [None]
